FAERS Safety Report 8188959-0 (Version None)
Quarter: 2012Q1

REPORT INFORMATION
  Report Type: 
  Country: None (occurrence: None)
  Receive Date: 20120306
  Receipt Date: 20120223
  Transmission Date: 20120608
  Serious: Yes (Hospitalization, Other)
  Sender: FDA-Public Use
  Company Number: PHEH2011US010134

PATIENT
  Sex: Female

DRUGS (11)
  1. TASIGNA [Suspect]
     Indication: BREAST CANCER
     Dosage: UNK UKN, UNK
  2. CALCITRIOL [Concomitant]
     Dosage: 25 UG, UNK
  3. CALCIUM [Concomitant]
     Dosage: UNK UKN, UNK
  4. AFINITOR [Suspect]
     Indication: BREAST CANCER METASTATIC
     Dosage: 10 MG, QD
     Dates: start: 20111102
  5. ANTIBIOTICS [Suspect]
  6. SYNTHROID [Concomitant]
     Dosage: 175 UG, UNK
  7. AFINITOR [Suspect]
     Dosage: 10 MG, UNK
     Dates: end: 20111125
  8. AROMASIN [Suspect]
     Dosage: UNK UKN, UNK
  9. ASCORBIC ACID [Concomitant]
     Dosage: UNK UKN, UNK
  10. ZOLOFT [Concomitant]
     Dosage: 50 MG, UNK
  11. VITAMIN-MINERAL COMPOUND TAB [Concomitant]
     Dosage: UNK UKN, UNK

REACTIONS (12)
  - HEADACHE [None]
  - DRUG INTOLERANCE [None]
  - PYREXIA [None]
  - DYSPNOEA [None]
  - FEELING ABNORMAL [None]
  - VOMITING [None]
  - CHILLS [None]
  - MALAISE [None]
  - PNEUMONIA [None]
  - ASTHENIA [None]
  - OXYGEN SATURATION DECREASED [None]
  - DECREASED APPETITE [None]
